FAERS Safety Report 13159123 (Version 2)
Quarter: 2017Q1

REPORT INFORMATION
  Report Type: Spontaneous
  Country: KR (occurrence: KR)
  Receive Date: 20170127
  Receipt Date: 20170202
  Transmission Date: 20170428
  Serious: Yes (Other)
  Sender: FDA-Public Use
  Company Number: KR-009507513-1701KOR011025

PATIENT
  Age: 61 Year
  Sex: Male
  Weight: 52.5 kg

DRUGS (12)
  1. TAXOL [Concomitant]
     Active Substance: PACLITAXEL
     Indication: LUNG NEOPLASM MALIGNANT
     Dosage: 262.5 MG, FREQUENCY: 1, CYCLE: 2
     Route: 042
     Dates: start: 20161118, end: 20161118
  2. EMEND (FOSAPREPITANT DIMEGLUMINE) [Suspect]
     Active Substance: FOSAPREPITANT DIMEGLUMINE
     Indication: PROPHYLAXIS OF NAUSEA AND VOMITING
     Dosage: 150 MG, ONCE
     Route: 042
     Dates: start: 20161118, end: 20161118
  3. EMEND (FOSAPREPITANT DIMEGLUMINE) [Suspect]
     Active Substance: FOSAPREPITANT DIMEGLUMINE
     Dosage: 150 MG, ONCE
     Route: 042
     Dates: start: 20161209, end: 20161209
  4. DEXAMETHASONE. [Concomitant]
     Active Substance: DEXAMETHASONE
     Indication: PROPHYLAXIS OF NAUSEA AND VOMITING
     Dosage: 3.75 MG, FREQUENCY: 2
     Route: 048
     Dates: start: 20161119, end: 20161121
  5. CHLORPHENIRAMINE MALEATE. [Concomitant]
     Active Substance: CHLORPHENIRAMINE MALEATE
     Indication: ALLERGY PROPHYLAXIS
     Dosage: STRENGTH: 4MG/2ML/AMP, 4MG, FREQUENCY: 1
     Route: 042
     Dates: start: 20161118, end: 20161118
  6. LASIX [Concomitant]
     Active Substance: FUROSEMIDE
     Indication: PROPHYLAXIS
     Dosage: STRENGTH: 20MG/2ML, 20MG, FREQUENCY: 1
     Route: 042
     Dates: start: 20161118, end: 20161118
  7. DEXAMETHASONE SODIUM PHOSPHATE. [Concomitant]
     Active Substance: DEXAMETHASONE SODIUM PHOSPHATE
     Indication: PROPHYLAXIS OF NAUSEA AND VOMITING
     Dosage: 10 MG, FREQUENCY: 1
     Route: 042
     Dates: start: 20161118, end: 20161118
  8. DONG A GASTER [Concomitant]
     Indication: PROPHYLAXIS
     Dosage: 20 MG, FREQUENCY: 1
     Route: 042
     Dates: start: 20161118, end: 20161118
  9. MANNITOL. [Concomitant]
     Active Substance: MANNITOL
     Indication: PROPHYLAXIS
     Dosage: STRENGTH: 15% 100ML, 100ML, FREQUENCY: 1
     Route: 042
     Dates: start: 20161118, end: 20161118
  10. MEGACE [Concomitant]
     Active Substance: MEGESTROL ACETATE
     Indication: DECREASED APPETITE
     Dosage: 10 ML, FREQUENCY: 2
     Route: 048
     Dates: start: 20161118
  11. CISPLATIN. [Concomitant]
     Active Substance: CISPLATIN
     Indication: LUNG NEOPLASM MALIGNANT
     Dosage: STRENGTH: 50MG/100ML, 105MG, CYCLE:1, FREQUENCY: 1
     Route: 042
     Dates: start: 20161118, end: 20161118
  12. ALOXI [Concomitant]
     Active Substance: PALONOSETRON HYDROCHLORIDE
     Indication: PROPHYLAXIS OF NAUSEA AND VOMITING
     Dosage: 0.25MG, FREQUENCY: 1
     Route: 042
     Dates: start: 20161118, end: 20161118

REACTIONS (3)
  - Neutropenia [Recovered/Resolved]
  - Myalgia [Recovered/Resolved]
  - Neuropathy peripheral [Recovered/Resolved]

NARRATIVE: CASE EVENT DATE: 20161128
